FAERS Safety Report 8280709-2 (Version None)
Quarter: 2012Q2

REPORT INFORMATION
  Report Type: 
  Country: None (occurrence: None)
  Receive Date: 20120412
  Receipt Date: 20110822
  Transmission Date: 20120825
  Serious: Yes (Hospitalization)
  Sender: FDA-Public Use
  Company Number: US-ASTRAZENECA-2011SE50690

PATIENT
  Age: 524 Month
  Sex: Male
  Weight: 79.9 kg

DRUGS (3)
  1. TRAZODONE HCL [Concomitant]
  2. NEXIUM [Suspect]
     Dosage: AS NEEDED
     Route: 048
  3. SUNUTINIB MALATE, SORAFENIB, PLACEBO (CODE NOT BROKEN) [Concomitant]
     Indication: RENAL CELL CARCINOMA
     Route: 048
     Dates: start: 20100423

REACTIONS (2)
  - CHEST PAIN [None]
  - PALMAR-PLANTAR ERYTHRODYSAESTHESIA SYNDROME [None]
